FAERS Safety Report 5826016-6 (Version None)
Quarter: 2008Q3

REPORT INFORMATION
  Report Type: 
  Country: None (occurrence: None)
  Receive Date: 20080729
  Receipt Date: 20080717
  Transmission Date: 20090109
  Serious: Yes (Death, Hospitalization)
  Sender: FDA-Public Use
  Company Number: CH-ROCHE-574858

PATIENT
  Sex: Male

DRUGS (6)
  1. CAPECITABINE [Suspect]
     Route: 048
     Dates: start: 20080623, end: 20080705
  2. OXALIPLATIN [Suspect]
     Dosage: AS PER PROTOCOL, DOSAGE FORM: LYOPHILISED POWDER ACTION TAKEN: NONE
     Route: 042
     Dates: start: 20080623, end: 20080706
  3. GEMCITABINE [Suspect]
     Dosage: AS PER PROTOCOL, DOSAGE FORM: LYOPHILISED POWDER ACTION TAKEN: NONE
     Route: 042
     Dates: start: 20080623, end: 20080706
  4. DEXIUM [Concomitant]
     Route: 048
     Dates: start: 20080620
  5. NOVALGIN [Concomitant]
     Dosage: TDD: 20 X 4
     Route: 050
     Dates: start: 20080620
  6. TEMESTA [Concomitant]
     Route: 048
     Dates: start: 20080620

REACTIONS (3)
  - ABDOMINAL PAIN [None]
  - COLITIS [None]
  - DIARRHOEA [None]
